FAERS Safety Report 13088774 (Version 1)
Quarter: 2017Q1

REPORT INFORMATION
  Report Type: Spontaneous
  Country: US (occurrence: US)
  Receive Date: 20170105
  Receipt Date: 20170105
  Transmission Date: 20170428
  Serious: Yes (Other)
  Sender: FDA-Public Use
  Company Number: None

PATIENT
  Age: 83 Year
  Sex: Female
  Weight: 76.2 kg

DRUGS (16)
  1. VITAMIN E [Concomitant]
     Active Substance: .ALPHA.-TOCOPHEROL
  2. LUTEIN [Concomitant]
     Active Substance: LUTEIN
  3. LATANOPROST. [Concomitant]
     Active Substance: LATANOPROST
  4. SYNTHROID [Concomitant]
     Active Substance: LEVOTHYROXINE SODIUM
  5. VITAMIN B12 [Concomitant]
     Active Substance: CYANOCOBALAMIN
  6. LYSINE [Concomitant]
     Active Substance: LYSINE
  7. MULTI PROBIOTIC [Concomitant]
  8. VITAMIN A [Concomitant]
     Active Substance: VITAMIN A
  9. MAGNESIUM [Concomitant]
     Active Substance: MAGNESIUM
  10. ALPRAZOLAM. [Concomitant]
     Active Substance: ALPRAZOLAM
  11. VITAMIN D3 [Concomitant]
     Active Substance: CHOLECALCIFEROL
  12. VITAMIN C [Concomitant]
     Active Substance: ASCORBIC ACID
  13. COMBIGAN [Suspect]
     Active Substance: BRIMONIDINE TARTRATE\TIMOLOL MALEATE
     Indication: GLAUCOMA
     Dosage: QUANITY - 1 DROP EACH EYE?FREQUENCY - AT 1 AM, AT 2PM?
     Route: 047
     Dates: start: 20161219, end: 20161220
  14. BUPROPION HYDROCHLORIDE XL [Concomitant]
     Active Substance: BUPROPION HYDROCHLORIDE
  15. RED YEAST RICE [Concomitant]
     Active Substance: DIETARY SUPPLEMENT
  16. BIOTIN [Concomitant]
     Active Substance: BIOTIN

REACTIONS (3)
  - Somnolence [None]
  - Asthenia [None]
  - Blood pressure decreased [None]

NARRATIVE: CASE EVENT DATE: 20161219
